FAERS Safety Report 5506127-5 (Version None)
Quarter: 2007Q4

REPORT INFORMATION
  Report Type: 
  Country: None (occurrence: None)
  Receive Date: 20071101
  Receipt Date: 20071024
  Transmission Date: 20080405
  Serious: Yes (Other)
  Sender: FDA-Public Use
  Company Number: 2007BI002488

PATIENT
  Sex: Female

DRUGS (1)
  1. AVONEX [Suspect]
     Indication: DRUG USE FOR UNKNOWN INDICATION
     Dosage: IM
     Route: 030

REACTIONS (1)
  - LYMPHOMA [None]
